FAERS Safety Report 5294566-X (Version None)
Quarter: 2007Q2

REPORT INFORMATION
  Report Type: 
  Country: None (occurrence: None)
  Receive Date: 20070409
  Receipt Date: 20070409
  Transmission Date: 20071010
  Serious: Yes (Other)
  Sender: FDA-Public Use
  Company Number: None

PATIENT
  Age: 43 Year
  Sex: Male
  Weight: 73.9363 kg

DRUGS (2)
  1. BUPROPION HCL [Suspect]
     Indication: ANXIETY
     Dosage: 1 1X A DAY PO
     Route: 048
     Dates: start: 20070323, end: 20070326
  2. BUPROPION HCL [Suspect]
     Indication: DEPRESSION
     Dosage: 1 1X A DAY PO
     Route: 048
     Dates: start: 20070323, end: 20070326

REACTIONS (4)
  - ANXIETY [None]
  - BLOOD PRESSURE INCREASED [None]
  - DEPRESSION [None]
  - PHARMACEUTICAL PRODUCT COMPLAINT [None]
